FAERS Safety Report 16684160 (Version 2)
Quarter: 2019Q3

REPORT INFORMATION
  Report Type: Report from Study
  Country: GB (occurrence: GB)
  Receive Date: 20190808
  Receipt Date: 20190813
  Transmission Date: 20191004
  Serious: Yes (Hospitalization)
  Sender: FDA-Public Use
  Company Number: GB-ROCHE-2363805

PATIENT
  Sex: Male

DRUGS (1)
  1. TOCILIZUMAB. [Suspect]
     Active Substance: TOCILIZUMAB
     Indication: RHEUMATOID ARTHRITIS
     Route: 065
     Dates: start: 20180615

REACTIONS (16)
  - Acute kidney injury [Unknown]
  - Central venous catheterisation [Unknown]
  - Lung neoplasm malignant [Unknown]
  - Pleural effusion [Unknown]
  - Spinal stenosis [Unknown]
  - Arthritis bacterial [Unknown]
  - Anaemia [Unknown]
  - Back pain [Unknown]
  - Transfusion [Unknown]
  - Osteomyelitis [Unknown]
  - Lung consolidation [Unknown]
  - Haematoma [Unknown]
  - Hypoglycaemia [Unknown]
  - Barrett^s oesophagus [Unknown]
  - Pleural mass [Unknown]
  - Bone marrow oedema [Unknown]

NARRATIVE: CASE EVENT DATE: 20190106
